FAERS Safety Report 9405127 (Version 1)
Quarter: 2013Q3

REPORT INFORMATION
  Report Type: Report from Study
  Country: US (occurrence: US)
  Receive Date: 20130717
  Receipt Date: 20130717
  Transmission Date: 20140515
  Serious: Yes (Hospitalization)
  Sender: FDA-Public Use
  Company Number: US-ACTELION-A-NJ2013-85989

PATIENT
  Age: 67 Year
  Sex: Male

DRUGS (2)
  1. VENTAVIS [Suspect]
     Indication: PULMONARY ARTERIAL HYPERTENSION
     Dosage: 6X/DAY
     Route: 055
  2. COUMADIN [Concomitant]

REACTIONS (2)
  - Shoulder operation [Unknown]
  - Disease complication [Unknown]
